FAERS Safety Report 8991368 (Version 1)
Quarter: 2012Q4

REPORT INFORMATION
  Report Type: Report from Study
  Country: JP (occurrence: JP)
  Receive Date: 20121230
  Receipt Date: 20121230
  Transmission Date: 20130627
  Serious: Yes (Other)
  Sender: FDA-Public Use
  Company Number: JP-US-EMD SERONO, INC.-7183502

PATIENT
  Sex: Female
  Weight: 48 kg

DRUGS (4)
  1. GONAL-F [Suspect]
     Indication: OVULATION INDUCTION
     Route: 058
     Dates: start: 20100729, end: 20100731
  2. GONAL-F [Suspect]
     Route: 058
     Dates: start: 20100801, end: 20100804
  3. CLOMIFENE [Concomitant]
     Indication: OVULATION INDUCTION
     Route: 048
     Dates: start: 20100727, end: 20100731
  4. BUSERECUR [Concomitant]
     Indication: PRODUCT USED FOR UNKNOWN INDICATION
     Route: 045
     Dates: start: 20100804, end: 20100804

REACTIONS (1)
  - Abortion missed [Unknown]
